FAERS Safety Report 9378013 (Version 1)
Quarter: 2013Q2

REPORT INFORMATION
  Report Type: Spontaneous
  Country: FR (occurrence: None)
  Receive Date: 20130625
  Receipt Date: 20130625
  Transmission Date: 20140414
  Serious: Yes (Hospitalization)
  Sender: FDA-Public Use
  Company Number: 2013000139

PATIENT
  Age: 95 Year
  Sex: Female

DRUGS (13)
  1. ACEON [Suspect]
     Indication: PRODUCT USED FOR UNKNOWN INDICATION
     Route: 048
     Dates: end: 20130303
  2. TEMESTA [Suspect]
     Indication: PRODUCT USED FOR UNKNOWN INDICATION
     Route: 048
     Dates: end: 20130303
  3. TRAMADOL [Suspect]
     Indication: PRODUCT USED FOR UNKNOWN INDICATION
     Dates: end: 20130302
  4. IKOREL [Suspect]
     Indication: PRODUCT USED FOR UNKNOWN INDICATION
     Route: 048
     Dates: end: 20130304
  5. LAROXYL [Suspect]
     Indication: PRODUCT USED FOR UNKNOWN INDICATION
     Route: 048
  6. NEUROTIN (ACETYLCAMITINE HYDROCHLORIDE) 300MG [Suspect]
     Indication: PRODUCT USED FOR UNKNOWN INDICATION
  7. LASILIX [Suspect]
     Indication: PRODUCT USED FOR UNKNOWN INDICATION
     Route: 048
     Dates: end: 20130303
  8. DEBRIDAT ( TRIMEBUTINE MALEATE) [Concomitant]
  9. FORLAX (MACROGOL) [Concomitant]
  10. AUGMENTIN (AMOXICILLIN SODIUM, CLAVULANATE POTASSIUM) [Concomitant]
  11. TARDYFERON (FERROUS SULFATE) [Concomitant]
  12. DIFFU K (POTASSIUM CHLORIDE) [Concomitant]
  13. HEMIGOXINE NATIVELLE (DIGOXIN) [Concomitant]

REACTIONS (6)
  - Dehydration [None]
  - Renal failure [None]
  - Confusional state [None]
  - Kidney infection [None]
  - Rhabdomyolysis [None]
  - Fall [None]
